FAERS Safety Report 14292622 (Version 1)
Quarter: 2017Q4

REPORT INFORMATION
  Report Type: Spontaneous
  Country: US (occurrence: US)
  Receive Date: 20171215
  Receipt Date: 20171215
  Transmission Date: 20180321
  Serious: No
  Sender: FDA-Public Use
  Company Number: US-LPDUSPRD-20161055

PATIENT
  Age: 31 Year
  Sex: Female
  Weight: 83.92 kg

DRUGS (2)
  1. VENOFER [Suspect]
     Active Substance: IRON SUCROSE
     Dosage: UNKNOWN DOSE
     Route: 065
     Dates: end: 20161117
  2. B12 INJECTION [Concomitant]
     Dosage: UNKNOWN
     Route: 051

REACTIONS (2)
  - Chromaturia [Recovered/Resolved]
  - Off label use [Unknown]
